FAERS Safety Report 12597055 (Version 3)
Quarter: 2016Q3

REPORT INFORMATION
  Report Type: Spontaneous
  Country: JP (occurrence: JP)
  Receive Date: 20160726
  Receipt Date: 20160909
  Transmission Date: 20161109
  Serious: Yes (Life-Threatening, Hospitalization, Other)
  Sender: FDA-Public Use
  Company Number: JP-BRISTOL-MYERS SQUIBB COMPANY-BMS-2016-061159

PATIENT
  Age: 70 Year
  Sex: Female

DRUGS (8)
  1. OPDIVO [Suspect]
     Active Substance: NIVOLUMAB
     Dosage: 100 MG, UNK
     Route: 041
     Dates: start: 20160423, end: 20160423
  2. DEXAMETHASONE. [Suspect]
     Active Substance: DEXAMETHASONE
     Indication: PRODUCT USED FOR UNKNOWN INDICATION
     Route: 065
  3. OPDIVO [Suspect]
     Active Substance: NIVOLUMAB
     Indication: FALLOPIAN TUBE CANCER
     Dosage: 100 MG, UNK
     Route: 041
     Dates: start: 20160213, end: 20160213
  4. OPDIVO [Suspect]
     Active Substance: NIVOLUMAB
     Dosage: 100 MG, UNK
     Route: 041
     Dates: start: 20160312, end: 20160312
  5. OPDIVO [Suspect]
     Active Substance: NIVOLUMAB
     Dosage: 100 MG, UNK
     Route: 041
     Dates: start: 20160409, end: 20160409
  6. OPDIVO [Suspect]
     Active Substance: NIVOLUMAB
     Dosage: 100 MG, UNK
     Route: 041
     Dates: start: 20160326, end: 20160326
  7. OPDIVO [Suspect]
     Active Substance: NIVOLUMAB
     Dosage: 100 MG, UNK
     Route: 041
     Dates: start: 20160229, end: 20160229
  8. OPDIVO [Suspect]
     Active Substance: NIVOLUMAB
     Dosage: 100 MG, UNK
     Route: 041
     Dates: start: 20160507, end: 20160507

REACTIONS (3)
  - Malignant neoplasm progression [Unknown]
  - Fulminant type 1 diabetes mellitus [Not Recovered/Not Resolved]
  - Off label use [Unknown]

NARRATIVE: CASE EVENT DATE: 2016
